FAERS Safety Report 7207102-5 (Version None)
Quarter: 2011Q1

REPORT INFORMATION
  Report Type: 
  Country: None (occurrence: None)
  Receive Date: 20110103
  Receipt Date: 20101228
  Transmission Date: 20110831
  Serious: Yes (Life-Threatening, Hospitalization)
  Sender: FDA-Public Use
  Company Number: US-ELI_LILLY_AND_COMPANY-US201012006503

PATIENT
  Sex: Male
  Weight: 71.81 kg

DRUGS (7)
  1. PEMETREXED [Suspect]
     Indication: NON-SMALL CELL LUNG CANCER
     Dosage: 709 MG, UNK
     Dates: start: 20101102
  2. GLUCOPHAGE [Concomitant]
     Dosage: 1000 MG, 2/D
     Route: 048
     Dates: start: 20100101
  3. CETUXIMAB [Suspect]
     Indication: NON-SMALL CELL LUNG CANCER
     Dosage: 480 MG, UNK
     Dates: start: 20101102, end: 20101214
  4. CARBOPLATIN [Suspect]
     Indication: NON-SMALL CELL LUNG CANCER
     Dosage: 544 MG, UNK
     Dates: start: 20101102
  5. PULMICORT [Concomitant]
     Dosage: 0.5 MG, 2/D
     Route: 055
     Dates: start: 20101214
  6. PLAVIX [Concomitant]
     Dosage: 75 MG, DAILY (1/D)
     Route: 048
     Dates: start: 20100701
  7. LOVENOX [Concomitant]
     Dosage: 60 MG, UNK
     Route: 058
     Dates: start: 20101001

REACTIONS (4)
  - CONSTIPATION [None]
  - CEREBRAL HAEMORRHAGE [None]
  - AGITATION [None]
  - CONFUSIONAL STATE [None]
